FAERS Safety Report 24828249 (Version 2)
Quarter: 2025Q1

REPORT INFORMATION
  Report Type: Spontaneous
  Country: US (occurrence: US)
  Receive Date: 20250109
  Receipt Date: 20250114
  Transmission Date: 20250409
  Serious: No
  Sender: ABBVIE
  Company Number: US-ABBVIE-6076789

PATIENT
  Sex: Female

DRUGS (1)
  1. CREON [Suspect]
     Active Substance: PANCRELIPASE AMYLASE\PANCRELIPASE LIPASE\PANCRELIPASE PROTEASE
     Indication: Pancreatitis chronic
     Route: 048

REACTIONS (15)
  - Rotavirus infection [Unknown]
  - Pain [Unknown]
  - Norovirus infection [Unknown]
  - Hypophagia [Unknown]
  - Bronchitis [Unknown]
  - Asthma [Unknown]
  - Pancreatitis chronic [Unknown]
  - Hyperhidrosis [Unknown]
  - Immunodeficiency [Unknown]
  - Mobility decreased [Unknown]
  - Spinal disorder [Unknown]
  - Craniocerebral injury [Unknown]
  - Cystic fibrosis [Unknown]
  - Nervous system disorder [Unknown]
  - Off label use [Unknown]

NARRATIVE: CASE EVENT DATE: 20250101
